FAERS Safety Report 9903041 (Version 1)
Quarter: 2014Q1

REPORT INFORMATION
  Report Type: Spontaneous
  Country: IR (occurrence: IR)
  Receive Date: 20140217
  Receipt Date: 20140217
  Transmission Date: 20141002
  Serious: Yes (Hospitalization, Other)
  Sender: FDA-Public Use
  Company Number: PHHY2014IR017511

PATIENT
  Age: 34 Year
  Sex: Male

DRUGS (9)
  1. CARBAMAZEPINE [Suspect]
     Dosage: 800 MG PER DAY
  2. VALPROIC ACID [Suspect]
     Indication: MANIA
     Dosage: 600 MG, UNK
  3. PROPRANOLOL [Suspect]
     Indication: TREMOR
  4. PROPRANOLOL [Suspect]
     Dosage: 120 MG, UNK
  5. LAMOTRIGINE [Suspect]
     Dosage: 100 MG, UNK
  6. OLANZAPINE [Suspect]
     Dosage: 10 MG, PER DAY
  7. METHAMPHETAMINE [Suspect]
  8. LITHIUM [Suspect]
  9. ARIPIPRAZOLE [Concomitant]
     Dosage: 20 MG, PER DAY

REACTIONS (7)
  - Psychotic disorder [Unknown]
  - Tremor [Recovering/Resolving]
  - Vitiligo [Recovered/Resolved]
  - Skin depigmentation [Recovering/Resolving]
  - Asthenia [Recovering/Resolving]
  - Dry mouth [Recovering/Resolving]
  - Drug ineffective [Unknown]
